FAERS Safety Report 4870354-0 (Version None)
Quarter: 2006Q1

REPORT INFORMATION
  Report Type: 
  Country: None (occurrence: None)
  Receive Date: 20060103
  Receipt Date: 20051227
  Transmission Date: 20060701
  Serious: Yes (Hospitalization)
  Sender: FDA-Public Use
  Company Number: JP-BOEHRINGER INGELHEIM PHARMACEUTICALS, INC.-2005-BP-21885NB

PATIENT
  Sex: Female

DRUGS (2)
  1. MICARDIS [Suspect]
     Route: 048
     Dates: end: 20051226
  2. EUGLUCON [Suspect]
     Route: 048
     Dates: end: 20051223

REACTIONS (1)
  - HYPOGLYCAEMIA [None]
